FAERS Safety Report 8321418-0 (Version None)
Quarter: 2012Q2

REPORT INFORMATION
  Report Type: 
  Country: None (occurrence: None)
  Receive Date: 20120430
  Receipt Date: 20120420
  Transmission Date: 20120825
  Serious: No
  Sender: FDA-Public Use
  Company Number: US-BAYER-2012-039058

PATIENT
  Sex: Female

DRUGS (1)
  1. MIRENA [Suspect]
     Dosage: 20 MCG/24HR, CONT
     Route: 015

REACTIONS (5)
  - VOMITING [None]
  - FATIGUE [None]
  - FEELING HOT [None]
  - PREGNANCY WITH CONTRACEPTIVE DEVICE [None]
  - HOT FLUSH [None]
